FAERS Safety Report 14219314 (Version 2)
Quarter: 2018Q3

REPORT INFORMATION
  Report Type: Spontaneous
  Country: US (occurrence: US)
  Receive Date: 20171123
  Receipt Date: 20180831
  Transmission Date: 20181010
  Serious: No
  Sender: FDA-Public Use
  Company Number: US-JNJFOC-20171013914

PATIENT
  Sex: Female

DRUGS (3)
  1. HUMALOG MIX [Concomitant]
     Active Substance: INSULIN LISPRO
     Indication: DIABETES MELLITUS
     Route: 065
  2. HUMALOG [Concomitant]
     Active Substance: INSULIN LISPRO
     Indication: DIABETES MELLITUS
     Route: 065
  3. INVOKANA [Suspect]
     Active Substance: CANAGLIFLOZIN
     Indication: PRODUCT USED FOR UNKNOWN INDICATION
     Dosage: DRUG START DATE:2014 OR 2015
     Route: 048
     Dates: start: 20140321

REACTIONS (8)
  - Muscle spasms [Not Recovered/Not Resolved]
  - Eating disorder [Not Recovered/Not Resolved]
  - Treatment noncompliance [Unknown]
  - Gait inability [Not Recovered/Not Resolved]
  - Blood glucose increased [Unknown]
  - Gastrointestinal disorder [Not Recovered/Not Resolved]
  - Hypoaesthesia [Unknown]
  - Abdominal pain upper [Not Recovered/Not Resolved]
